FAERS Safety Report 4501275-0 (Version None)
Quarter: 2004Q4

REPORT INFORMATION
  Report Type: 
  Country: None (occurrence: None)
  Receive Date: 20041110
  Receipt Date: 20041027
  Transmission Date: 20050328
  Serious: Yes (Death)
  Sender: FDA-Public Use
  Company Number: 2004242559GB

PATIENT
  Age: 58 Year
  Sex: Female
  Weight: 75 kg

DRUGS (6)
  1. DOXORUBICIN HCL [Suspect]
     Indication: ADENOCARCINOMA
     Dosage: 65 MG, SINGLE, IV
     Route: 042
     Dates: start: 20041001
  2. CYCLOPHOSPHAMIDE [Suspect]
     Indication: ADENOCARCINOMA
     Dosage: 1230 MG, SINGLE, IV
     Route: 042
     Dates: start: 20041001
  3. TAZOCIN (TAZOBACTAM SODIUM) [Concomitant]
  4. GENTAMICIN [Concomitant]
  5. FILGRASTIM [Concomitant]
  6. VINCRISTINE [Suspect]
     Indication: ADENOCARCINOMA
     Dosage: 2 MG, SINGLE, IV
     Route: 042
     Dates: start: 20041001

REACTIONS (3)
  - BONE MARROW DEPRESSION [None]
  - MULTI-ORGAN FAILURE [None]
  - NEUTROPENIC SEPSIS [None]
